FAERS Safety Report 9819206 (Version 2)
Quarter: 2014Q1

REPORT INFORMATION
  Report Type: Spontaneous
  Country: US (occurrence: US)
  Receive Date: 20140115
  Receipt Date: 20140115
  Transmission Date: 20141002
  Serious: Yes (Disabling)
  Sender: FDA-Public Use
  Company Number: US-GE HEALTHCARE MEDICAL DIAGNOSTICS-OSCN-PR-0906S-0285

PATIENT
  Age: 66 Year
  Sex: Male

DRUGS (24)
  1. OMNISCAN [Suspect]
     Indication: RENAL ARTERY STENOSIS
     Dates: start: 20050118, end: 20050118
  2. OMNISCAN [Suspect]
     Indication: ARTHRITIS BACTERIAL
     Dates: start: 20050301, end: 20050301
  3. OMNISCAN [Suspect]
     Indication: OSTEOMYELITIS
     Route: 042
     Dates: start: 20060301, end: 20060301
  4. OMNISCAN [Suspect]
     Indication: PHARYNGEAL LESION
  5. DIURIL [Concomitant]
  6. CLONIDINE PATCH [Concomitant]
  7. LASIX [Concomitant]
  8. HEPARIN [Concomitant]
  9. LABETALOL [Concomitant]
  10. OMEPRAZOLE [Concomitant]
  11. NIFEDIPINE [Concomitant]
  12. PREDNISONE [Concomitant]
  13. METOPROLOL [Concomitant]
  14. FENTANYL PATCH [Concomitant]
  15. EPOGEN [Concomitant]
  16. RENAGEL [Concomitant]
  17. COUMADIN [Concomitant]
  18. NEPHROVITE [Concomitant]
  19. HYDRALAZINE [Concomitant]
  20. HYDROMORPHONE [Concomitant]
  21. NORTRIPTYLINE [Concomitant]
  22. HYDROXYZINE PAMOATE [Concomitant]
  23. SULFAMETHOXAZOLE AND TRIMETHOPRIM [Concomitant]
  24. PROCHLORPERAZINE [Concomitant]

REACTIONS (1)
  - Nephrogenic systemic fibrosis [Not Recovered/Not Resolved]
